FAERS Safety Report 8022306-X (Version None)
Quarter: 2012Q1

REPORT INFORMATION
  Report Type: 
  Country: None (occurrence: None)
  Receive Date: 20120104
  Receipt Date: 20111228
  Transmission Date: 20120608
  Serious: Yes (Other)
  Sender: FDA-Public Use
  Company Number: PHFR2011GB05965

PATIENT
  Sex: Male
  Weight: 67 kg

DRUGS (8)
  1. CLOZARIL [Suspect]
     Dosage: 25 MG, UNK
     Route: 048
     Dates: end: 20111121
  2. LEVOTHYROXINE SODIUM [Concomitant]
     Dosage: 50 MG, UNK
     Route: 048
  3. LORAZEPAM [Concomitant]
     Route: 048
  4. SINEMET [Concomitant]
     Route: 048
  5. CLOZARIL [Suspect]
     Indication: PSYCHOTIC DISORDER
     Dosage: 12.5 MG
     Route: 048
     Dates: start: 20111017
  6. PROCYCLIDINE HYDROCHLORIDE 2MG TAB [Concomitant]
     Dosage: 10 MG, UNK
     Route: 048
  7. OLANZAPINE [Concomitant]
     Dosage: 2.5 MG, UNK
  8. PROPRANOLOL [Concomitant]
     Dosage: 20 MG, UNK
     Route: 048

REACTIONS (12)
  - SEDATION [None]
  - HEADACHE [None]
  - FEELING ABNORMAL [None]
  - SOMNOLENCE [None]
  - GAIT DISTURBANCE [None]
  - EYE DISORDER [None]
  - FLUSHING [None]
  - FATIGUE [None]
  - SYNCOPE [None]
  - HYPOTENSION [None]
  - MUSCULOSKELETAL STIFFNESS [None]
  - SALIVARY HYPERSECRETION [None]
